FAERS Safety Report 9900106 (Version 1)
Quarter: 2014Q1

REPORT INFORMATION
  Report Type: Spontaneous
  Country: ES (occurrence: ES)
  Receive Date: 20140214
  Receipt Date: 20140214
  Transmission Date: 20141002
  Serious: Yes (Hospitalization)
  Sender: FDA-Public Use
  Company Number: ES-ABBVIE-14P-144-1200631-00

PATIENT
  Sex: Male

DRUGS (1)
  1. HUMIRA [Suspect]
     Indication: CROHN^S DISEASE
     Dates: end: 201304

REACTIONS (3)
  - Thrombosis [Recovered/Resolved]
  - Blood creatinine increased [Not Recovered/Not Resolved]
  - Blood cholesterol decreased [Unknown]
